FAERS Safety Report 14406411 (Version 2)
Quarter: 2018Q1

REPORT INFORMATION
  Report Type: Spontaneous
  Country: US (occurrence: CA)
  Receive Date: 20180118
  Receipt Date: 20180126
  Transmission Date: 20180509
  Serious: Yes (Other)
  Sender: FDA-Public Use
  Company Number: US-BAYER-2018-008009

PATIENT
  Age: 80 Year
  Sex: Female

DRUGS (1)
  1. RESTORALAX [Suspect]
     Active Substance: POLYETHYLENE GLYCOL 3350
     Dosage: UNK
     Dates: start: 201712

REACTIONS (15)
  - Cognitive disorder [Recovering/Resolving]
  - Weight decreased [Recovering/Resolving]
  - Head titubation [Recovering/Resolving]
  - Mental impairment [Not Recovered/Not Resolved]
  - Chills [Recovering/Resolving]
  - Visual impairment [Recovering/Resolving]
  - Decreased appetite [Not Recovered/Not Resolved]
  - Neck pain [None]
  - Balance disorder [None]
  - Peripheral coldness [Recovering/Resolving]
  - Back pain [None]
  - Nausea [Recovering/Resolving]
  - Head discomfort [Recovering/Resolving]
  - Underdose [None]
  - Diarrhoea [Recovering/Resolving]

NARRATIVE: CASE EVENT DATE: 201712
